FAERS Safety Report 15288821 (Version 4)
Quarter: 2018Q4

REPORT INFORMATION
  Report Type: Spontaneous
  Country: DE (occurrence: DE)
  Receive Date: 20180817
  Receipt Date: 20181203
  Transmission Date: 20190204
  Serious: Yes (Hospitalization, Other)
  Sender: FDA-Public Use
  Company Number: PHHY2018DE070777

PATIENT
  Age: 50 Year
  Sex: Female

DRUGS (27)
  1. AMITRIPTYLINE [Suspect]
     Active Substance: AMITRIPTYLINE
     Indication: DEPRESSION
     Dosage: 75 MG, QD
     Route: 048
     Dates: start: 20120910, end: 20130131
  2. LYRICA [Suspect]
     Active Substance: PREGABALIN
     Dosage: 75 MG, QD
     Route: 048
     Dates: start: 20121121, end: 20121122
  3. LYRICA [Suspect]
     Active Substance: PREGABALIN
     Dosage: 125 MG, QD
     Route: 048
     Dates: start: 20130115, end: 20130121
  4. LYRICA [Suspect]
     Active Substance: PREGABALIN
     Dosage: 25 MG, QD
     Route: 048
     Dates: start: 20121115, end: 20121118
  5. SIMVASTATIN. [Concomitant]
     Active Substance: SIMVASTATIN
     Indication: PRODUCT USED FOR UNKNOWN INDICATION
     Dosage: 40 MG, QD
     Route: 048
     Dates: start: 20120910
  6. NOVALGIN (METAMIZOLE SODIUM) [Concomitant]
     Active Substance: METAMIZOLE SODIUM
     Indication: PRODUCT USED FOR UNKNOWN INDICATION
     Dosage: 500 MG, PRN
     Route: 065
     Dates: start: 20120910, end: 20130214
  7. CYMBALTA [Concomitant]
     Active Substance: DULOXETINE HYDROCHLORIDE
     Indication: PRODUCT USED FOR UNKNOWN INDICATION
     Dosage: 120 MG, QD
     Route: 048
     Dates: start: 20121016
  8. PROPYPHENAZONE/CAFFEINE/PARACETAMOL [Concomitant]
     Indication: PRODUCT USED FOR UNKNOWN INDICATION
     Dosage: 500 MG, UNK
     Route: 048
     Dates: start: 20120910, end: 20130214
  9. LYRICA [Suspect]
     Active Substance: PREGABALIN
     Dosage: 150 MG, QD
     Route: 048
     Dates: start: 20121123, end: 20121210
  10. DOMINAL [Concomitant]
     Indication: PRODUCT USED FOR UNKNOWN INDICATION
     Dosage: 120 MG, QD
     Route: 048
     Dates: start: 20120910
  11. RISPERDAL [Suspect]
     Active Substance: RISPERIDONE
     Indication: DEPRESSION
     Dosage: 5 MG, QD 20 MG, DAILY (RANK 1: 1-5MG P.O.)
     Route: 048
     Dates: start: 20121227
  12. LYRICA [Suspect]
     Active Substance: PREGABALIN
     Dosage: 50 MG, QD
     Route: 048
     Dates: start: 20121119, end: 20121120
  13. LYRICA [Suspect]
     Active Substance: PREGABALIN
     Dosage: 125 MG, QD
     Route: 048
     Dates: start: 20130115, end: 20130121
  14. LYRICA [Suspect]
     Active Substance: PREGABALIN
     Dosage: 75 MG, QD
     Route: 048
     Dates: start: 20130122, end: 20130123
  15. LYRICA [Suspect]
     Active Substance: PREGABALIN
     Dosage: 50 MG, QD
     Route: 048
     Dates: start: 20130124, end: 20130129
  16. LYRICA [Suspect]
     Active Substance: PREGABALIN
     Indication: PRODUCT USED FOR UNKNOWN INDICATION
     Dosage: 25 MG, QD
     Route: 048
     Dates: start: 20121115, end: 20121118
  17. LYRICA [Suspect]
     Active Substance: PREGABALIN
     Dosage: 50 MG, QD
     Route: 048
     Dates: start: 20130129
  18. LYRICA [Suspect]
     Active Substance: PREGABALIN
     Dosage: 75 MG, QD
     Route: 048
     Dates: start: 20121121, end: 20121122
  19. LYRICA [Suspect]
     Active Substance: PREGABALIN
     Dosage: 150 MG, QD
     Route: 048
     Dates: start: 20121123, end: 20121210
  20. LYRICA [Suspect]
     Active Substance: PREGABALIN
     Dosage: 50 MG, QD
     Route: 048
     Dates: start: 20121119, end: 20121120
  21. LYRICA [Suspect]
     Active Substance: PREGABALIN
     Dosage: 75 MG, QD
     Route: 048
     Dates: start: 20130123
  22. LYRICA [Suspect]
     Active Substance: PREGABALIN
     Dosage: 50 MG, QD
     Route: 048
     Dates: start: 20130124
  23. ZOPICLON [Concomitant]
     Active Substance: ZOPICLONE
     Indication: PRODUCT USED FOR UNKNOWN INDICATION
     Dosage: 7.5 MG, QD
     Route: 048
     Dates: start: 20120910
  24. PANTOZOL [Suspect]
     Active Substance: PANTOPRAZOLE SODIUM
     Indication: PRODUCT USED FOR UNKNOWN INDICATION
     Dosage: 20 MG, QD
     Route: 048
     Dates: start: 20120910
  25. LYRICA [Suspect]
     Active Substance: PREGABALIN
     Dosage: 175 MG, QD
     Route: 048
     Dates: start: 20121211, end: 20130114
  26. LYRICA [Suspect]
     Active Substance: PREGABALIN
     Dosage: 75 MG, QD
     Route: 048
     Dates: start: 20130122
  27. LYRICA [Suspect]
     Active Substance: PREGABALIN
     Dosage: 125 - 150 MG
     Route: 048

REACTIONS (3)
  - Oedema peripheral [Recovered/Resolved]
  - Off label use [Unknown]
  - Product use in unapproved indication [Unknown]

NARRATIVE: CASE EVENT DATE: 20121227
